FAERS Safety Report 6647007-1 (Version None)
Quarter: 2010Q1

REPORT INFORMATION
  Report Type: 
  Country: None (occurrence: None)
  Receive Date: 20100323
  Receipt Date: 20100125
  Transmission Date: 20100710
  Serious: No
  Sender: FDA-Public Use
  Company Number: A0834305A

PATIENT
  Age: 53 Year
  Sex: Female

DRUGS (9)
  1. LAMICTAL XR [Suspect]
     Indication: EPILEPSY
     Dosage: 300MG PER DAY
     Route: 048
     Dates: start: 20091103
  2. PHENOBARBITAL TAB [Concomitant]
  3. POTASSIUM CHLORIDE [Concomitant]
  4. SPIRONOLACTONE [Concomitant]
  5. FOLIC ACID [Concomitant]
  6. HYDROCHLOROTHIAZIDE [Concomitant]
  7. HERBAL SUPPLEMENTS [Concomitant]
  8. CALCIUM [Concomitant]
  9. VITAMIN D [Concomitant]

REACTIONS (3)
  - HOT FLUSH [None]
  - POOR QUALITY SLEEP [None]
  - POSTMENOPAUSE [None]
